FAERS Safety Report 16017100 (Version 1)
Quarter: 2019Q1

REPORT INFORMATION
  Report Type: Spontaneous
  Country: US (occurrence: US)
  Receive Date: 20190228
  Receipt Date: 20190228
  Transmission Date: 20190418
  Serious: No
  Sender: FDA-Public Use
  Company Number: US-TEVA-2019-US-1009228

PATIENT
  Sex: Female
  Weight: 74.84 kg

DRUGS (1)
  1. WARFARIN [Suspect]
     Active Substance: WARFARIN
     Indication: THROMBOSIS
     Dosage: 2.5 MILLIGRAM DAILY; ONCE AT NIGHT
     Route: 065

REACTIONS (3)
  - Pain in extremity [Unknown]
  - Scar [Not Recovered/Not Resolved]
  - Inadequate diet [Not Recovered/Not Resolved]
